FAERS Safety Report 25449940 (Version 1)
Quarter: 2025Q2

REPORT INFORMATION
  Report Type: Spontaneous
  Country: FR (occurrence: FR)
  Receive Date: 20250618
  Receipt Date: 20250618
  Transmission Date: 20250716
  Serious: Yes (Hospitalization)
  Sender: AUROBINDO
  Company Number: FR-AFSSAPS-GR2025000765

PATIENT
  Age: 94 Year
  Sex: Female
  Weight: 90 kg

DRUGS (3)
  1. AMIODARONE [Suspect]
     Active Substance: AMIODARONE
     Indication: Atrial fibrillation
     Dosage: 200 MILLIGRAM, ONCE A DAY
     Route: 048
     Dates: start: 20250219, end: 20250317
  2. GABAPENTIN [Suspect]
     Active Substance: GABAPENTIN
     Indication: Peripheral motor neuropathy
     Dosage: 1800 MILLIGRAM, ONCE A DAY
     Route: 048
     Dates: end: 20250314
  3. GABAPENTIN [Suspect]
     Active Substance: GABAPENTIN
     Dosage: 600 MILLIGRAM, ONCE A DAY
     Route: 048
     Dates: start: 20250315

REACTIONS (1)
  - Action tremor [Recovered/Resolved]

NARRATIVE: CASE EVENT DATE: 20250309
